FAERS Safety Report 9772648 (Version 2)
Quarter: 2015Q3

REPORT INFORMATION
  Report Type: Spontaneous
  Country: US (occurrence: US)
  Receive Date: 20131219
  Receipt Date: 20150721
  Transmission Date: 20151125
  Serious: No
  Sender: FDA-Public Use
  Company Number: US-GILEAD-2010-0028630

PATIENT
  Age: 44 Year
  Sex: Male

DRUGS (1)
  1. CAYSTON [Suspect]
     Active Substance: AZTREONAM
     Indication: CYSTIC FIBROSIS
     Route: 055
     Dates: start: 20100410

REACTIONS (3)
  - Joint swelling [Unknown]
  - Arthralgia [Unknown]
  - Fluid retention [Unknown]
